FAERS Safety Report 18193919 (Version 1)
Quarter: 2020Q3

REPORT INFORMATION
  Report Type: Spontaneous
  Country: RU (occurrence: RU)
  Receive Date: 20200825
  Receipt Date: 20200825
  Transmission Date: 20201103
  Serious: Yes (Other)
  Sender: FDA-Public Use
  Company Number: NVSC2020RU230741

PATIENT
  Age: 13 Year
  Sex: Female
  Weight: 47 kg

DRUGS (5)
  1. COTRIMOXAZOLE [Concomitant]
     Active Substance: SULFAMETHOXAZOLE\TRIMETHOPRIM
     Indication: PROPHYLAXIS
     Dosage: UNK
     Route: 048
     Dates: start: 201905
  2. BACPERAZONE [Concomitant]
     Indication: AGRANULOCYTOSIS
     Dosage: UNK
     Route: 042
     Dates: start: 20200731
  3. VFEND [Concomitant]
     Active Substance: VORICONAZOLE
     Indication: PROPHYLAXIS
     Dosage: UNK
     Route: 048
     Dates: start: 20200729
  4. AMICAKIN [Concomitant]
     Indication: AGRANULOCYTOSIS
     Dosage: UNK
     Route: 042
     Dates: start: 20200731
  5. EDICIN [Suspect]
     Active Substance: VANCOMYCIN HYDROCHLORIDE
     Indication: AGRANULOCYTOSIS
     Dosage: 500 MG, TID
     Route: 041
     Dates: start: 20200731, end: 20200801

REACTIONS (1)
  - Urticaria [Recovered/Resolved with Sequelae]

NARRATIVE: CASE EVENT DATE: 20200801
